FAERS Safety Report 6915628-4 (Version None)
Quarter: 2010Q3

REPORT INFORMATION
  Report Type: 
  Country: None (occurrence: None)
  Receive Date: 20100810
  Receipt Date: 20100802
  Transmission Date: 20110219
  Serious: Yes (Hospitalization, Other)
  Sender: FDA-Public Use
  Company Number: US-ASTRAZENECA-2007UW04473

PATIENT
  Age: 14950 Day
  Sex: Female
  Weight: 136.1 kg

DRUGS (41)
  1. SEROQUEL [Suspect]
     Indication: BIPOLAR DISORDER
     Dosage: 25 TO 350 MG
     Route: 048
     Dates: start: 20001108, end: 20060522
  2. SEROQUEL [Suspect]
     Indication: DEPRESSION
     Dosage: 25 TO 350 MG
     Route: 048
     Dates: start: 20001108, end: 20060522
  3. SEROQUEL [Suspect]
     Indication: POST-TRAUMATIC STRESS DISORDER
     Dosage: 25 TO 350 MG
     Route: 048
     Dates: start: 20001108, end: 20060522
  4. SEROQUEL [Suspect]
     Route: 048
     Dates: start: 20010905
  5. SEROQUEL [Suspect]
     Route: 048
     Dates: start: 20010905
  6. SEROQUEL [Suspect]
     Route: 048
     Dates: start: 20010905
  7. SEROQUEL [Suspect]
     Dosage: 30 TO 600 MG
     Route: 048
     Dates: start: 20010924, end: 20060530
  8. SEROQUEL [Suspect]
     Dosage: 30 TO 600 MG
     Route: 048
     Dates: start: 20010924, end: 20060530
  9. SEROQUEL [Suspect]
     Dosage: 30 TO 600 MG
     Route: 048
     Dates: start: 20010924, end: 20060530
  10. ATIVAN [Concomitant]
     Indication: ANXIETY
     Dosage: 1 TO 2 MG
     Route: 048
  11. CLONAZEPAM [Concomitant]
     Dosage: 0.5 TO 1 MG
     Route: 048
  12. COMBIVENT [Concomitant]
  13. EFFEXOR [Concomitant]
     Dosage: 75 TO 300 MG
     Route: 048
  14. ETODOLAC [Concomitant]
     Dosage: 300, 400 MG
     Route: 048
  15. FAMOTIDINE [Concomitant]
     Route: 048
  16. FLOVENT [Concomitant]
  17. GEODON [Concomitant]
     Dosage: 40, 60 MG , 20MG TO 240 MG
     Route: 048
     Dates: start: 20000101, end: 20010101
  18. GLIPIZIDE [Concomitant]
     Dosage: 2.5, 5 MG
     Route: 048
  19. HALDOL [Concomitant]
     Route: 048
     Dates: start: 20010924
  20. HYDROCORTISONE [Concomitant]
  21. HYZAAR [Concomitant]
     Dosage: 100/25 MG
     Route: 048
  22. LITHIUM [Concomitant]
     Dosage: 300-900 MG
     Route: 048
     Dates: start: 20080301
  23. NYSTATIN [Concomitant]
     Route: 061
  24. PAXIL [Concomitant]
  25. PROTONIX [Concomitant]
     Route: 048
  26. PREVACID [Concomitant]
     Route: 048
  27. PROVENTIL [Concomitant]
  28. PROZAC [Concomitant]
     Route: 048
  29. REMERON [Concomitant]
     Dosage: 30 TO 45 MG
     Route: 048
  30. RISPERDAL [Concomitant]
     Indication: PERSONALITY DISORDER
     Dosage: 3.5 MG TO 5.5 MG
     Route: 048
     Dates: start: 20001107, end: 20001113
  31. RISPERDAL [Concomitant]
     Indication: AGITATION
     Dosage: 3.5 MG TO 5.5 MG
     Route: 048
     Dates: start: 20001107, end: 20001113
  32. RISPERDAL [Concomitant]
     Dosage: 0.5MG TO 2 MG
     Dates: start: 20001215, end: 20010629
  33. RISPERDAL [Concomitant]
     Dosage: 0.5MG TO 2 MG
     Dates: start: 20001215, end: 20010629
  34. RISPERDAL [Concomitant]
     Dates: start: 20010214, end: 20010216
  35. RISPERDAL [Concomitant]
     Dates: start: 20010214, end: 20010216
  36. RISPERDAL [Concomitant]
     Dates: start: 20010609, end: 20010601
  37. RISPERDAL [Concomitant]
     Dates: start: 20010609, end: 20010601
  38. TRAZODONE [Concomitant]
     Dosage: 50 TO 400 MG
     Route: 048
  39. ACETAMINOPHEN [Concomitant]
     Dosage: 325 TO 650 MG
     Route: 048
  40. VISTARIL [Concomitant]
     Indication: ANXIETY
     Route: 048
  41. WELLBUTRIN [Concomitant]
     Route: 048

REACTIONS (34)
  - AFFECTIVE DISORDER [None]
  - ANXIETY [None]
  - BIPOLAR DISORDER [None]
  - BORDERLINE PERSONALITY DISORDER [None]
  - CHEST PAIN [None]
  - COUGH [None]
  - DIABETIC KETOACIDOSIS [None]
  - DIARRHOEA [None]
  - DYSPNOEA [None]
  - DYSTHYMIC DISORDER [None]
  - FAMILY STRESS [None]
  - FATIGUE [None]
  - FEELINGS OF WORTHLESSNESS [None]
  - HAEMORRHOIDS [None]
  - HIRSUTISM [None]
  - IRRITABILITY [None]
  - IRRITABLE BOWEL SYNDROME [None]
  - MAJOR DEPRESSION [None]
  - MANIA [None]
  - MASS [None]
  - MUSCLE SPASMS [None]
  - MUSCULOSKELETAL PAIN [None]
  - NAUSEA [None]
  - NECK PAIN [None]
  - OBESITY [None]
  - OSTEOARTHRITIS [None]
  - PANCREATITIS [None]
  - POST-TRAUMATIC STRESS DISORDER [None]
  - SEASONAL ALLERGY [None]
  - SINUSITIS [None]
  - SUBSTANCE ABUSE [None]
  - SUICIDAL IDEATION [None]
  - TYPE 2 DIABETES MELLITUS [None]
  - UPPER-AIRWAY COUGH SYNDROME [None]
